FAERS Safety Report 8622993-9 (Version None)
Quarter: 2012Q3

REPORT INFORMATION
  Report Type: 
  Country: None (occurrence: None)
  Receive Date: 20120810
  Receipt Date: 20120801
  Transmission Date: 20120928
  Serious: Yes (Death, Hospitalization)
  Sender: FDA-Public Use
  Company Number: AUR-APL-2012-03348

PATIENT
  Age: 47 Year
  Sex: Male
  Weight: 101 kg

DRUGS (6)
  1. MORPHINE [Concomitant]
  2. ZYPREXA [Suspect]
     Indication: SCHIZOPHRENIA
     Dosage: 10 MG DAILY AS NEEDED UP TO A MAXIMUM DOSE OF 20 MG FOR TWO OR THREE DAYS, INTRAMUSCULAR
     Route: 030
  3. OLANZAPINE [Suspect]
     Indication: SCHIZOPHRENIA
     Dosage: (20 MG), ORAL, (20 MG), ORAL
     Route: 048
     Dates: start: 20111130
  4. OLANZAPINE [Suspect]
     Indication: OFF LABEL USE
     Dosage: (20 MG), ORAL, (20 MG), ORAL
     Route: 048
     Dates: start: 20111130
  5. OLANZAPINE [Suspect]
     Indication: SCHIZOPHRENIA
     Dosage: (20 MG), ORAL, (20 MG), ORAL
     Route: 048
     Dates: end: 20111128
  6. OLANZAPINE [Suspect]
     Indication: OFF LABEL USE
     Dosage: (20 MG), ORAL, (20 MG), ORAL
     Route: 048
     Dates: end: 20111128

REACTIONS (7)
  - INTESTINAL INFARCTION [None]
  - SHOCK [None]
  - MEGACOLON [None]
  - SYSTEMIC CANDIDA [None]
  - OFF LABEL USE [None]
  - CONFUSIONAL STATE [None]
  - MULTI-ORGAN FAILURE [None]
